FAERS Safety Report 13560744 (Version 1)
Quarter: 2017Q2

REPORT INFORMATION
  Report Type: Spontaneous
  Country: US (occurrence: US)
  Receive Date: 20170518
  Receipt Date: 20170518
  Transmission Date: 20170830
  Serious: No
  Sender: FDA-Public Use
  Company Number: US-ROCHE-1228306

PATIENT
  Sex: Male

DRUGS (1)
  1. NAPROSYNE [Suspect]
     Active Substance: NAPROXEN
     Indication: PRODUCT USED FOR UNKNOWN INDICATION
     Route: 065
     Dates: start: 20130423

REACTIONS (1)
  - Intraocular pressure increased [Not Recovered/Not Resolved]
